FAERS Safety Report 13087597 (Version 1)
Quarter: 2017Q1

REPORT INFORMATION
  Report Type: Spontaneous
  Country: AU (occurrence: AU)
  Receive Date: 20170105
  Receipt Date: 20170105
  Transmission Date: 20170428
  Serious: Yes (Life-Threatening, Hospitalization, Other)
  Sender: FDA-Public Use
  Company Number: AU-ORION CORPORATION ORION PHARMA-TREX2017-0073

PATIENT
  Age: 43 Year
  Sex: Male

DRUGS (1)
  1. METHOTREXATE. [Suspect]
     Active Substance: METHOTREXATE
     Indication: PSORIASIS
     Route: 048

REACTIONS (9)
  - Malaise [Recovering/Resolving]
  - Gastrointestinal inflammation [Recovering/Resolving]
  - Febrile neutropenia [Recovering/Resolving]
  - Photosensitivity reaction [Recovering/Resolving]
  - Drug prescribing error [Unknown]
  - Haematotoxicity [Recovering/Resolving]
  - Stomatitis [Recovering/Resolving]
  - Toxicity to various agents [Recovering/Resolving]
  - Staphylococcal skin infection [Recovering/Resolving]
